FAERS Safety Report 24691532 (Version 3)
Quarter: 2024Q4

REPORT INFORMATION
  Report Type: Spontaneous
  Country: IN (occurrence: IN)
  Receive Date: 20241203
  Receipt Date: 20241211
  Transmission Date: 20250115
  Serious: Yes (Hospitalization)
  Sender: PFIZER
  Company Number: IN-PFIZER INC-PV202400147908

PATIENT
  Age: 20 Year
  Sex: Female

DRUGS (3)
  1. LORLATINIB [Suspect]
     Active Substance: LORLATINIB
     Indication: Non-small cell lung cancer metastatic
     Dosage: 50 MG, 1X/DAY
     Route: 048
     Dates: start: 20241109
  2. LORLATINIB [Suspect]
     Active Substance: LORLATINIB
     Dosage: 75 MG, 1X/DAY
     Route: 048
     Dates: start: 20241115
  3. LORLATINIB [Suspect]
     Active Substance: LORLATINIB
     Dosage: 100 MG, 1X/DAY
     Route: 048
     Dates: start: 20241121

REACTIONS (13)
  - Pleural effusion [Recovered/Resolved]
  - Pericardial effusion [Recovered/Resolved]
  - Productive cough [Recovering/Resolving]
  - Flatulence [Recovering/Resolving]
  - Sleep disorder [Recovering/Resolving]
  - Pigmentation disorder [Not Recovered/Not Resolved]
  - Blood test abnormal [Not Recovered/Not Resolved]
  - Stress [Unknown]
  - Anxiety [Unknown]
  - Dyspnoea exertional [Not Recovered/Not Resolved]
  - Fatigue [Not Recovered/Not Resolved]
  - Heart rate increased [Not Recovered/Not Resolved]
  - Neoplasm progression [Not Recovered/Not Resolved]

NARRATIVE: CASE EVENT DATE: 20241111
